FAERS Safety Report 16154407 (Version 3)
Quarter: 2020Q2

REPORT INFORMATION
  Report Type: Spontaneous
  Country: US (occurrence: US)
  Receive Date: 20190403
  Receipt Date: 20200422
  Transmission Date: 20200713
  Serious: Yes (Death, Other)
  Sender: FDA-Public Use
  Company Number: US-GLAXOSMITHKLINE-US2019GSK059345

PATIENT
  Sex: Female

DRUGS (1)
  1. PREVACID [Suspect]
     Active Substance: LANSOPRAZOLE
     Indication: GASTROOESOPHAGEAL REFLUX DISEASE
     Dosage: UNK
     Route: 065
     Dates: start: 20010811, end: 20030126

REACTIONS (6)
  - Secondary hypertension [Fatal]
  - End stage renal disease [Fatal]
  - Chronic kidney disease [Unknown]
  - Renal cyst [Unknown]
  - Renal failure [Unknown]
  - Azotaemia [Unknown]
